FAERS Safety Report 16716055 (Version 6)
Quarter: 2025Q3

REPORT INFORMATION
  Report Type: Spontaneous
  Country: EU (occurrence: EU)
  Receive Date: 20190819
  Receipt Date: 20250926
  Transmission Date: 20251020
  Serious: Yes (Hospitalization, Other)
  Sender: MYLAN
  Company Number: EU-NOVPHSZ-PHHY2019FR055649

PATIENT
  Age: 83 Year
  Sex: Female

DRUGS (4)
  1. LATANOPROST [Suspect]
     Active Substance: LATANOPROST
     Indication: Glaucoma
  2. LATANOPROST [Suspect]
     Active Substance: LATANOPROST
     Route: 047
  3. LATANOPROST [Suspect]
     Active Substance: LATANOPROST
     Route: 047
  4. LATANOPROST [Suspect]
     Active Substance: LATANOPROST

REACTIONS (4)
  - Metamorphopsia [Recovered/Resolved]
  - Visual acuity reduced [Recovering/Resolving]
  - Corneal epithelium defect [Unknown]
  - Macular oedema [Recovered/Resolved]
